FAERS Safety Report 23777594 (Version 2)
Quarter: 2024Q2

REPORT INFORMATION
  Report Type: Report from Study
  Country: GB (occurrence: GB)
  Receive Date: 20240424
  Receipt Date: 20240430
  Transmission Date: 20240716
  Serious: Yes (Other)
  Sender: FDA-Public Use
  Company Number: GB-ARGENX-2023-ARGX-GB000977

PATIENT

DRUGS (1)
  1. VYVGART [Suspect]
     Active Substance: EFGARTIGIMOD ALFA-FCAB
     Indication: Myasthenia gravis
     Dosage: UNK
     Route: 065

REACTIONS (17)
  - Myasthenia gravis [Unknown]
  - Dyspnoea at rest [Unknown]
  - Myasthenia gravis [Not Recovered/Not Resolved]
  - Myasthenia gravis [Unknown]
  - Oropharyngeal pain [Unknown]
  - Tremor [Unknown]
  - Muscle spasms [Unknown]
  - Hypersomnia [Unknown]
  - Tooth extraction [Unknown]
  - Heat exhaustion [Unknown]
  - Pain [Unknown]
  - Off label use [Unknown]
  - Fatigue [Unknown]
  - Fatigue [Unknown]
  - Infection [Unknown]
  - Nasopharyngitis [Unknown]
  - Therapeutic product effect decreased [Unknown]

NARRATIVE: CASE EVENT DATE: 20230531
